FAERS Safety Report 6732311-9 (Version None)
Quarter: 2010Q2

REPORT INFORMATION
  Report Type: 
  Country: None (occurrence: None)
  Receive Date: 20100519
  Receipt Date: 20100504
  Transmission Date: 20101027
  Serious: Yes (Death)
  Sender: FDA-Public Use
  Company Number: AU-TYCO HEALTHCARE/MALLINCKRODT-T201001183

PATIENT

DRUGS (5)
  1. NALTREXONE HYDROCHLORIDE [Suspect]
     Indication: DRUG DETOXIFICATION
     Dosage: 50 MG ORAL POST ANAESTHESIA
     Route: 048
  2. NALOXONE [Suspect]
     Indication: DRUG DETOXIFICATION
     Dosage: 0.4MG IV AS TEST
     Route: 042
  3. NALOXONE [Suspect]
     Dosage: 0.4MG IV
     Route: 042
  4. NALMEFENE [Suspect]
     Indication: DRUG DETOXIFICATION
     Dosage: 4MG INFUSION OVER 2-3 HOURS
     Route: 042
  5. PROPOFOL [Suspect]
     Indication: ANAESTHESIA
     Dosage: UNK

REACTIONS (1)
  - DEATH [None]
